FAERS Safety Report 9253373 (Version 1)
Quarter: 2013Q2

REPORT INFORMATION
  Report Type: Spontaneous
  Country: US (occurrence: US)
  Receive Date: 20130425
  Receipt Date: 20130425
  Transmission Date: 20140414
  Serious: Yes (Other)
  Sender: FDA-Public Use
  Company Number: US-AMGEN-USASP2013028259

PATIENT
  Age: 58 Year
  Sex: Female
  Weight: 72.56 kg

DRUGS (15)
  1. ENBREL [Suspect]
     Indication: PRODUCT USED FOR UNKNOWN INDICATION
     Dosage: 50 MG, QWK
     Route: 058
  2. AMLODIPINE [Concomitant]
     Dosage: 5 MG, UNK
  3. LORATADINE [Concomitant]
     Dosage: 10 MG, UNK
  4. TRICOR                             /00090101/ [Concomitant]
     Dosage: 48 MG, UNK
  5. NAPROXEN [Concomitant]
     Dosage: 250 MG, UNK
  6. LEFLUNOMIDE [Concomitant]
     Dosage: 10 MG, UNK
  7. HYDROXYCHLOROQUINE [Concomitant]
     Dosage: 200 MG, UNK
  8. HYDROCHLOROTHIAZIDE [Concomitant]
     Dosage: 12.5 MG, UNK
  9. METOPROLOL [Concomitant]
     Dosage: 25 MG, EXTENDED-RELEASE
  10. CELEXA                             /00582602/ [Concomitant]
     Dosage: 10 MG, UNK
  11. ACIPHEX [Concomitant]
     Dosage: 20 MG, UNK
  12. VITAMIN B-12 [Concomitant]
     Dosage: 5000 MUG, UNK
     Route: 060
  13. MULTIVITAMINS, PLAIN [Concomitant]
     Dosage: UNK
  14. FOLIC ACID [Concomitant]
     Dosage: UNK
  15. MELATONIN [Concomitant]
     Dosage: 1 MG, UNK

REACTIONS (2)
  - Coccidioidomycosis [Recovered/Resolved]
  - Bronchitis [Recovered/Resolved]
